FAERS Safety Report 17016570 (Version 3)
Quarter: 2019Q4

REPORT INFORMATION
  Report Type: Spontaneous
  Country: US (occurrence: US)
  Receive Date: 20191111
  Receipt Date: 20191216
  Transmission Date: 20200122
  Serious: No
  Sender: FDA-Public Use
  Company Number: US-PFIZER INC-2019482547

PATIENT
  Sex: Female

DRUGS (2)
  1. PREMIQUE LOW DOSE [Suspect]
     Active Substance: ESTROGENS, CONJUGATED\MEDROXYPROGESTERONE ACETATE
     Dosage: UNK
  2. PREMPRO [Suspect]
     Active Substance: ESTROGENS, CONJUGATED\MEDROXYPROGESTERONE ACETATE
     Dosage: UNK (0.3 MG/1.5 MG )

REACTIONS (5)
  - Drug ineffective [Unknown]
  - Hormone level abnormal [Unknown]
  - Vaginal haemorrhage [Unknown]
  - Dizziness [Unknown]
  - Suspected counterfeit product [Unknown]
